FAERS Safety Report 5993913-0 (Version None)
Quarter: 2008Q4

REPORT INFORMATION
  Report Type: 
  Country: None (occurrence: None)
  Receive Date: 20081212
  Receipt Date: 20081105
  Transmission Date: 20090506
  Serious: No
  Sender: FDA-Public Use
  Company Number: US-ABBOTT-08P-163-0469302-00

PATIENT
  Sex: Male
  Weight: 113.5 kg

DRUGS (12)
  1. HUMIRA [Suspect]
     Indication: CROHN'S DISEASE
     Route: 050
     Dates: start: 20070101
  2. HUMIRA [Suspect]
     Dates: start: 20080729
  3. TIZANIDINE HYDROCHLORIDE [Concomitant]
     Indication: DYSTONIA
     Route: 048
     Dates: start: 20080701
  4. TIZANIDINE HYDROCHLORIDE [Concomitant]
     Indication: NEUROPATHY PERIPHERAL
  5. CYCLOBENZAPRINE HCL [Concomitant]
     Indication: MUSCLE RELAXANT THERAPY
     Route: 048
     Dates: start: 20080723
  6. BENADRYL [Concomitant]
     Indication: DYSTONIA
     Route: 048
  7. CARISOPRODOL [Concomitant]
     Indication: DYSTONIA
     Route: 048
     Dates: start: 20080710
  8. BOTULINUM TOXIN TYPE A [Concomitant]
     Indication: DYSTONIA
     Dosage: 20 INJECTIONS IN LEGS,LEFT ARM, AND HAND EVERY 2 1/2 MONTHS
     Route: 050
     Dates: start: 20070201
  9. VALPROATE SODIUM [Concomitant]
     Indication: BIPOLAR DISORDER
     Route: 048
     Dates: start: 19880101
  10. VALPROATE SODIUM [Concomitant]
     Indication: EPILEPSY
  11. LEVETIRACETAM [Concomitant]
     Indication: CONVULSION
     Route: 048
     Dates: start: 19980101
  12. MORPHINE SULFATE [Concomitant]
     Indication: PAIN
     Route: 048
     Dates: start: 20000101

REACTIONS (2)
  - ABDOMINAL PAIN [None]
  - DIARRHOEA [None]
